FAERS Safety Report 6534383-3 (Version None)
Quarter: 2010Q1

REPORT INFORMATION
  Report Type: 
  Country: None (occurrence: None)
  Receive Date: 20100112
  Receipt Date: 20100105
  Transmission Date: 20100710
  Serious: Yes (Hospitalization)
  Sender: FDA-Public Use
  Company Number: SE-ELI_LILLY_AND_COMPANY-SE200910004590

PATIENT
  Sex: Male
  Weight: 86.5 kg

DRUGS (13)
  1. PEMETREXED [Suspect]
     Dosage: 500 MG/M2, EVERY SECOND WEEK
     Dates: start: 20090527, end: 20090826
  2. GEMCITABINE HCL [Suspect]
     Dosage: 1500 MG/M2, EVERY SECOND WEEK
     Dates: start: 20090527, end: 20090826
  3. COCILLANA-ETYFIN /00223001/ [Concomitant]
     Indication: COUGH
     Dates: start: 20090519
  4. HYDROKORTISON [Concomitant]
     Indication: RASH
     Dates: start: 20090603
  5. PRIMPERAN /00041901/ [Concomitant]
     Dosage: 10 MG, UNK
     Dates: start: 20090518
  6. ZOFRAN [Concomitant]
     Dosage: 8 MG, UNK
     Dates: start: 20090518
  7. BETAPRED [Concomitant]
     Indication: PROPHYLAXIS
     Dosage: 8.2 UNK
     Dates: start: 20090518
  8. BEHEPAN [Concomitant]
     Indication: PROPHYLAXIS
     Dosage: 1 MG/1ML, UNK
     Route: 030
     Dates: start: 20090518
  9. METFORMIN HYDROCHLORIDE [Concomitant]
     Indication: DIABETES MELLITUS
     Dosage: 500 MG, UNK
     Dates: start: 20081101
  10. ATACAND [Concomitant]
     Indication: DIABETES MELLITUS
     Dosage: 8 MG, DAILY (1/D)
     Dates: start: 20081101
  11. SIMVASTATIN [Concomitant]
     Indication: HYPERLIPIDAEMIA
     Dosage: 1 D/F, UNK
     Dates: start: 20081101
  12. TROMBYL [Concomitant]
     Indication: HYPERLIPIDAEMIA
     Dosage: 75 MG, DAILY (1/D)
     Dates: start: 20081101
  13. FOLIC ACID [Concomitant]
     Indication: PROPHYLAXIS
     Dates: start: 20090518, end: 20090925

REACTIONS (1)
  - PULMONARY EMBOLISM [None]
